FAERS Safety Report 9476558 (Version 1)
Quarter: 2013Q3

REPORT INFORMATION
  Report Type: Spontaneous
  Country: US (occurrence: None)
  Receive Date: 20130823
  Receipt Date: 20130823
  Transmission Date: 20140515
  Serious: No
  Sender: FDA-Public Use
  Company Number: None

PATIENT
  Sex: Female
  Weight: 71.22 kg

DRUGS (1)
  1. AMETHIA [Suspect]
     Route: 048

REACTIONS (7)
  - Product substitution issue [None]
  - Menstrual disorder [None]
  - Muscle spasms [None]
  - Depression [None]
  - Mood swings [None]
  - Crying [None]
  - Economic problem [None]
